FAERS Safety Report 14886566 (Version 1)
Quarter: 2018Q2

REPORT INFORMATION
  Report Type: Report from Study
  Country: BE (occurrence: BE)
  Receive Date: 20180512
  Receipt Date: 20180512
  Transmission Date: 20180711
  Serious: Yes (Death)
  Sender: FDA-Public Use
  Company Number: PHHY2018BE007560

PATIENT
  Age: 62 Year
  Sex: Female

DRUGS (1)
  1. SANDOSTATIN LAR DEPOT [Suspect]
     Active Substance: OCTREOTIDE ACETATE
     Indication: PRODUCT USED FOR UNKNOWN INDICATION
     Dosage: 20 MG, QMO  (PER FOUR WEEKS)
     Route: 030
     Dates: start: 20170825, end: 20180406

REACTIONS (1)
  - Death [Fatal]

NARRATIVE: CASE EVENT DATE: 20180424
